FAERS Safety Report 4549661-7 (Version None)
Quarter: 2005Q1

REPORT INFORMATION
  Report Type: 
  Country: None (occurrence: None)
  Receive Date: 20050111
  Receipt Date: 20050104
  Transmission Date: 20050727
  Serious: Yes (Hospitalization)
  Sender: FDA-Public Use
  Company Number: GB-GLAXOSMITHKLINE-B0363379A

PATIENT
  Age: 57 Year
  Sex: Female
  Weight: 57 kg

DRUGS (4)
  1. ONDANSETRON [Suspect]
     Indication: PROPHYLAXIS OF NAUSEA AND VOMITING
     Route: 042
  2. THYROXINE [Concomitant]
     Indication: HYPOTHYROIDISM
     Route: 048
  3. DICLOFENAC [Concomitant]
     Indication: PAIN
     Route: 048
  4. CODEINE [Concomitant]
     Indication: PAIN
     Route: 065

REACTIONS (4)
  - DYSKINESIA [None]
  - DYSTONIA [None]
  - INTENTIONAL SELF-INJURY [None]
  - TREMOR [None]
